FAERS Safety Report 15168708 (Version 2)
Quarter: 2018Q3

REPORT INFORMATION
  Report Type: Report from Study
  Country: US (occurrence: US)
  Receive Date: 20180720
  Receipt Date: 20180726
  Transmission Date: 20181010
  Serious: Yes (Other)
  Sender: FDA-Public Use
  Company Number: US-UNITED THERAPEUTICS-UNT-2018-008399

PATIENT
  Age: 59 Year
  Sex: Female
  Weight: 84.35 kg

DRUGS (2)
  1. ULTRAM [Suspect]
     Active Substance: TRAMADOL HYDROCHLORIDE
     Indication: PRODUCT USED FOR UNKNOWN INDICATION
     Route: 065
  2. TREPROSTINIL SODIUM (SQ) [Suspect]
     Active Substance: TREPROSTINIL SODIUM
     Indication: PULMONARY ARTERIAL HYPERTENSION
     Dosage: 0.052 ?G/KG, CONTINUING
     Route: 058
     Dates: start: 20170306

REACTIONS (10)
  - Infusion site erythema [Recovering/Resolving]
  - Dizziness [Unknown]
  - Asthenia [Unknown]
  - Infusion site discharge [Not Recovered/Not Resolved]
  - Nasopharyngitis [Unknown]
  - Infusion site pain [Recovering/Resolving]
  - Infusion site induration [Unknown]
  - Infusion site swelling [Recovering/Resolving]
  - Nightmare [Unknown]
  - Hallucination [Unknown]

NARRATIVE: CASE EVENT DATE: 201805
